FAERS Safety Report 9188080 (Version 1)
Quarter: 2013Q1

REPORT INFORMATION
  Report Type: Report from Study
  Country: NL (occurrence: NL)
  Receive Date: 20130325
  Receipt Date: 20130325
  Transmission Date: 20140127
  Serious: Yes (Death, Hospitalization, Other)
  Sender: FDA-Public Use
  Company Number: NL-ROCHE-1205551

PATIENT
  Age: 66 Year
  Sex: Male

DRUGS (7)
  1. CAPECITABINE [Suspect]
     Indication: COLON CANCER
     Dosage: LAST CYCLE ON 07/SEP/2012
     Route: 048
     Dates: start: 20100308
  2. BEVACIZUMAB [Suspect]
     Indication: COLON CANCER
     Dosage: LAST CYCLE ON 07/SEP/2012
     Route: 042
     Dates: start: 20100308
  3. NEXIUM [Concomitant]
     Route: 065
  4. CRESTOR [Concomitant]
     Route: 065
  5. LERCANIDIPINE [Concomitant]
     Route: 065
  6. BISACODYL [Concomitant]
     Route: 065
  7. PARACETAMOL [Concomitant]

REACTIONS (3)
  - Sepsis [Fatal]
  - Rectal perforation [Not Recovered/Not Resolved]
  - Abdominal pain [Not Recovered/Not Resolved]
